FAERS Safety Report 24579986 (Version 2)
Quarter: 2024Q4

REPORT INFORMATION
  Report Type: Spontaneous
  Country: DE (occurrence: DE)
  Receive Date: 20241105
  Receipt Date: 20241108
  Transmission Date: 20250115
  Serious: Yes (Other)
  Sender: ABBVIE
  Company Number: DE-ABBVIE-5987926

PATIENT
  Age: 59 Year
  Sex: Male

DRUGS (12)
  1. FOSCARBIDOPA\FOSLEVODOPA [Suspect]
     Active Substance: FOSCARBIDOPA\FOSLEVODOPA
     Indication: Parkinson^s disease
     Dosage: CR: 0.31 ML/H
     Route: 058
  2. FOSCARBIDOPA\FOSLEVODOPA [Suspect]
     Active Substance: FOSCARBIDOPA\FOSLEVODOPA
     Dosage: CR: 0.29 ML/H
     Route: 058
  3. FOSCARBIDOPA\FOSLEVODOPA [Suspect]
     Active Substance: FOSCARBIDOPA\FOSLEVODOPA
     Dosage: CR: 0.30 ML/H
     Route: 058
  4. FOSCARBIDOPA\FOSLEVODOPA [Suspect]
     Active Substance: FOSCARBIDOPA\FOSLEVODOPA
     Dosage: CRB: 0.32ML/H; CRL: 0.26ML/H
     Route: 058
  5. OPICAPONE [Concomitant]
     Active Substance: OPICAPONE
     Indication: Parkinson^s disease
  6. PRAMIPEXOLE [Concomitant]
     Active Substance: PRAMIPEXOLE\PRAMIPEXOLE DIHYDROCHLORIDE
     Indication: Parkinson^s disease
  7. QUETIAPINE [Concomitant]
     Active Substance: QUETIAPINE
     Indication: Product used for unknown indication
  8. L-Dopa-Carbidopa-Entacapone [Concomitant]
     Indication: Parkinson^s disease
  9. L-Dopa-Carbidopa-Entacapone [Concomitant]
     Indication: Parkinson^s disease
  10. L-dopa LT [Concomitant]
     Indication: Parkinson^s disease
     Dosage: 100/25MG
  11. SAFINAMIDE [Concomitant]
     Active Substance: SAFINAMIDE
     Indication: Parkinson^s disease
  12. CLOZAPINE [Concomitant]
     Active Substance: CLOZAPINE
     Indication: Product used for unknown indication

REACTIONS (18)
  - Suicidal ideation [Unknown]
  - Unevaluable event [Unknown]
  - Hallucination, visual [Unknown]
  - Restlessness [Unknown]
  - Psychomotor hyperactivity [Unknown]
  - Depressed mood [Not Recovered/Not Resolved]
  - Delirium [Unknown]
  - Delusion [Unknown]
  - Disorientation [Unknown]
  - Tremor [Unknown]
  - Suicidal ideation [Unknown]
  - Emotional distress [Unknown]
  - On and off phenomenon [Unknown]
  - Feeling abnormal [Unknown]
  - Dyskinesia [Unknown]
  - Fear [Unknown]
  - Suspiciousness [Unknown]
  - Unevaluable event [Unknown]
